FAERS Safety Report 9264522 (Version 2)
Quarter: 2013Q2

REPORT INFORMATION
  Report Type: Spontaneous
  Country: DE (occurrence: DE)
  Receive Date: 20130501
  Receipt Date: 20130517
  Transmission Date: 20140414
  Serious: Yes (Other)
  Sender: FDA-Public Use
  Company Number: DE-ROCHE-CID000000002402122

PATIENT
  Sex: Female

DRUGS (1)
  1. LUCENTIS [Suspect]
     Indication: PRODUCT USED FOR UNKNOWN INDICATION
     Dosage: 3 - 4 INJECTION PER YEAR, LAST DOSE PRIOR TO SAE WAS ON 18/MAR/2013.
     Route: 050
     Dates: start: 2008

REACTIONS (2)
  - Visual acuity reduced [Unknown]
  - Inappropriate schedule of drug administration [Unknown]
